FAERS Safety Report 18974900 (Version 1)
Quarter: 2021Q1

REPORT INFORMATION
  Report Type: Report from Study
  Country: None (occurrence: AR)
  Receive Date: 20210306
  Receipt Date: 20210306
  Transmission Date: 20210420
  Serious: Yes (Hospitalization, Other)
  Sender: FDA-Public Use
  Company Number: AR-ABBVIE-21K-007-3759526-00

PATIENT
  Age: 49 Year
  Sex: Female

DRUGS (1)
  1. HUMIRA [Suspect]
     Active Substance: ADALIMUMAB
     Indication: ANKYLOSING SPONDYLITIS
     Route: 058
     Dates: start: 20200924

REACTIONS (6)
  - Pneumonia [Recovering/Resolving]
  - Pulmonary oedema [Unknown]
  - COVID-19 [Recovered/Resolved]
  - Immunodeficiency [Unknown]
  - Sepsis [Recovering/Resolving]
  - Lung abscess [Recovering/Resolving]

NARRATIVE: CASE EVENT DATE: 202010
